FAERS Safety Report 23980734 (Version 1)
Quarter: 2024Q2

REPORT INFORMATION
  Report Type: Spontaneous
  Country: US (occurrence: US)
  Receive Date: 20240617
  Receipt Date: 20240617
  Transmission Date: 20240716
  Serious: Yes (Death, Other)
  Sender: FDA-Public Use
  Company Number: US-AMGEN-USASP2024117091

PATIENT

DRUGS (1)
  1. PREDNISONE [Suspect]
     Active Substance: PREDNISONE
     Indication: Chronic graft versus host disease
     Dosage: UNK
     Route: 065

REACTIONS (5)
  - Death [Fatal]
  - Chronic graft versus host disease [Unknown]
  - Drug resistance [Unknown]
  - Therapy partial responder [Unknown]
  - Treatment failure [Unknown]
